FAERS Safety Report 9044808 (Version 1)
Quarter: 2013Q1

REPORT INFORMATION
  Report Type: Report from Study
  Country: US (occurrence: US)
  Receive Date: 20130130
  Receipt Date: 20130130
  Transmission Date: 20140127
  Serious: No
  Sender: FDA-Public Use
  Company Number: US-ABBOTT-12P-163-0967489-00

PATIENT
  Age: 25 Year
  Sex: Female

DRUGS (6)
  1. HUMIRA 40 MG/0.8 ML PEN [Suspect]
     Indication: CROHN^S DISEASE
     Dosage: LOADING DOSE
     Dates: start: 20120808, end: 20120808
  2. HUMIRA 40 MG/0.8 ML PEN [Suspect]
     Dates: start: 20120809
  3. VITAMIN D2 [Concomitant]
     Indication: VITAMIN SUPPLEMENTATION
  4. PREDNISONE [Concomitant]
     Indication: PRODUCT USED FOR UNKNOWN INDICATION
  5. DILAUDID [Concomitant]
     Indication: PAIN
  6. CLONAZEPAM [Concomitant]
     Indication: ANXIETY

REACTIONS (2)
  - Injection site pain [Recovered/Resolved]
  - Injection site pain [Recovered/Resolved]
